FAERS Safety Report 7191597-X (Version None)
Quarter: 2010Q4

REPORT INFORMATION
  Report Type: 
  Country: None (occurrence: None)
  Receive Date: 20101223
  Receipt Date: 20101220
  Transmission Date: 20110411
  Serious: Yes (Hospitalization)
  Sender: FDA-Public Use
  Company Number: DE-ROCHE-746926

PATIENT
  Sex: Female
  Weight: 66 kg

DRUGS (3)
  1. CAPECITABINE [Suspect]
     Indication: BREAST CANCER
     Dosage: DOSE: 1000 MG/M2. ON DAY 1-14. LAST DOSE PRIOR TO SAE ON 02 DEC 2010.
     Route: 048
     Dates: start: 20101118
  2. BEVACIZUMAB [Suspect]
     Indication: BREAST CANCER
     Dosage: LAST DOSE PRIOR TO SAE ON 18 NOV 2010. ON DAY 1
     Route: 042
     Dates: start: 20101118
  3. VINORELBINE [Suspect]
     Indication: BREAST CANCER
     Dosage: ON DAY 1+8. LAST DOSE PRIOR TO SAE ON 18 NOVEMBER 2010.
     Route: 042
     Dates: start: 20101118

REACTIONS (4)
  - FATIGUE [None]
  - GENERAL PHYSICAL HEALTH DETERIORATION [None]
  - HAEMATOTOXICITY [None]
  - MUCOSAL INFLAMMATION [None]
